APPROVED DRUG PRODUCT: GABAPENTIN
Active Ingredient: GABAPENTIN
Strength: 600MG
Dosage Form/Route: TABLET;ORAL
Application: A206402 | Product #001 | TE Code: AB1
Applicant: ALKEM LABORATORIES LTD
Approved: Dec 23, 2015 | RLD: No | RS: No | Type: RX